FAERS Safety Report 7549205-1 (Version None)
Quarter: 2011Q2

REPORT INFORMATION
  Report Type: 
  Country: None (occurrence: None)
  Receive Date: 20110615
  Receipt Date: 20110603
  Transmission Date: 20111010
  Serious: Yes (Hospitalization, Other)
  Sender: FDA-Public Use
  Company Number: PHHY2011US49296

PATIENT
  Sex: Male

DRUGS (24)
  1. EXJADE [Suspect]
     Dosage: 250 MG, QD
     Route: 048
     Dates: start: 20110323
  2. EXJADE [Suspect]
     Dosage: 500 MG, QD
     Route: 048
     Dates: start: 20110413
  3. COUMADIN [Concomitant]
     Dosage: 2.5 MG, UNK AS DIRECTED
     Dates: start: 20101222
  4. LOMOTIL [Concomitant]
     Dosage: 2.5 MG, TID ,  AS NEEDED
     Dates: start: 20110209
  5. OXYCODONE HCL [Concomitant]
     Dosage: 05 MG, Q 4 HRS PRN
     Dates: start: 20101123
  6. FOLIC ACID [Concomitant]
     Dosage: 1 MG, QD
     Dates: start: 20101208
  7. LIDOCAINE [Concomitant]
     Dosage: UNK
     Route: 048
     Dates: start: 20110504
  8. VITAMIN D [Concomitant]
     Dosage: 1000 U, QD
     Route: 048
     Dates: start: 20101123
  9. STEROIDS NOS [Concomitant]
  10. NEORAL [Concomitant]
     Dosage: 50 MG, QHS
  11. BISMUTH SUBSALICYLATE [Concomitant]
     Dosage: 2
     Route: 048
     Dates: start: 20101123
  12. URSODIOL [Concomitant]
     Dosage: 900 MG, UNK
     Route: 048
  13. VITAMIN B-12 [Concomitant]
     Dosage: 1000 MCG, UNK
     Dates: start: 20101208
  14. LISINOPRIL [Concomitant]
     Dosage: 20 MG, QD
     Route: 048
     Dates: start: 20101123
  15. PROTONIX [Concomitant]
     Dosage: 40 MG, BID
     Dates: start: 20101123
  16. CARVEDILOL [Concomitant]
     Dosage: 25 MG, QD
     Dates: start: 20101123
  17. BUDESONIDE [Concomitant]
     Dosage: 3 MG, UNK 24 HR CAP
     Dates: start: 20101123
  18. PROCHLORPERAZINE MALEATE [Concomitant]
     Dosage: 10 MG, TID
  19. URSODIOL [Concomitant]
     Dosage: 300 MG, QD
     Route: 048
     Dates: start: 20101123
  20. CALCIUM CARBONATE [Concomitant]
     Dosage: 600 MG, QD
     Dates: start: 20101123
  21. NEORAL [Concomitant]
     Dosage: 25 MG, QAM
     Dates: start: 20101215
  22. RECLAST [Concomitant]
     Dosage: 5 MG, UNK
     Route: 042
     Dates: start: 20101123
  23. METHOTREXATE [Concomitant]
     Dosage: UNK
     Route: 042
     Dates: start: 20110126, end: 20110504
  24. MIRTAZAPINE [Concomitant]
     Dosage: 15 MG, QD
     Route: 048
     Dates: start: 20101208

REACTIONS (17)
  - DIARRHOEA [None]
  - HEART RATE IRREGULAR [None]
  - INSOMNIA [None]
  - RESPIRATORY FAILURE [None]
  - ABDOMINAL DISTENSION [None]
  - FATIGUE [None]
  - ANXIETY [None]
  - PAIN [None]
  - ABDOMINAL PAIN UPPER [None]
  - DEPRESSION [None]
  - DYSPNOEA [None]
  - INFECTION [None]
  - PYREXIA [None]
  - CHILLS [None]
  - DECREASED APPETITE [None]
  - NAUSEA [None]
  - NEUROPATHY PERIPHERAL [None]
